FAERS Safety Report 13460679 (Version 3)
Quarter: 2017Q2

REPORT INFORMATION
  Report Type: Spontaneous
  Country: US (occurrence: US)
  Receive Date: 20170420
  Receipt Date: 20170510
  Transmission Date: 20170830
  Serious: Yes (Disabling, Other)
  Sender: FDA-Public Use
  Company Number: US-009507513-1704USA007741

PATIENT
  Sex: Female

DRUGS (1)
  1. SINEMET [Suspect]
     Active Substance: CARBIDOPA\LEVODOPA
     Indication: PARKINSON^S DISEASE
     Dosage: ONE STANDARD TABLET IN THE MORNING AND ONE EXTENDED RELEASE TABLET FOUR TIMES DAILY
     Route: 048
     Dates: start: 2010

REACTIONS (19)
  - Fatigue [Unknown]
  - Somnolence [Unknown]
  - Hypertensive crisis [Unknown]
  - Drug dose omission [Unknown]
  - Functional residual capacity decreased [Unknown]
  - Gait disturbance [Unknown]
  - Depression [Unknown]
  - Speech disorder [Unknown]
  - Sluggishness [Unknown]
  - Nocturia [Unknown]
  - Dizziness [Unknown]
  - Anxiety [Unknown]
  - Impaired quality of life [Unknown]
  - Muscular weakness [Unknown]
  - Non-24-hour sleep-wake disorder [Unknown]
  - Orthostatic hypotension [Unknown]
  - Dyskinesia [Unknown]
  - Hallucination [Unknown]
  - Hypotension [Unknown]
